FAERS Safety Report 5444441-2 (Version None)
Quarter: 2007Q3

REPORT INFORMATION
  Report Type: 
  Country: None (occurrence: None)
  Receive Date: 20070827
  Receipt Date: 20070818
  Transmission Date: 20080115
  Serious: Yes (Other)
  Sender: FDA-Public Use
  Company Number: CHPA2007US08826

PATIENT
  Age: 22 Year
  Sex: Female

DRUGS (4)
  1. MAALOX MS TOTAL STOMACH RELIEF (NCH)(BISMUTH SUBSALICYLATE) SUSPENSION [Suspect]
     Indication: ABDOMINAL PAIN UPPER
     Dosage: ORAL
     Route: 048
     Dates: start: 20070817
  2. MAALOX MS TOTAL STOMACH RELIEF (NCH)(BISMUTH SUBSALICYLATE) SUSPENSION [Suspect]
     Indication: ABDOMINAL PAIN UPPER
     Dosage: ORAL
     Route: 048
     Dates: start: 20070818
  3. MORPHINE [Suspect]
     Indication: ABDOMINAL PAIN UPPER
     Dates: start: 20070817
  4. MORPHINE [Suspect]
     Indication: ABDOMINAL PAIN UPPER
     Dates: start: 20070818

REACTIONS (2)
  - FAECES DISCOLOURED [None]
  - MUSCLE CONTRACTURE [None]
